FAERS Safety Report 8740356 (Version 2)
Quarter: 2013Q4

REPORT INFORMATION
  Report Type: Spontaneous
  Country: US (occurrence: US)
  Receive Date: 20120823
  Receipt Date: 20131101
  Transmission Date: 20140711
  Serious: No
  Sender: FDA-Public Use
  Company Number: US-009507513-1208USA004307

PATIENT
  Sex: Male

DRUGS (3)
  1. NASONEX [Suspect]
     Indication: RHINITIS ALLERGIC
     Route: 045
  2. VERAMYST [Suspect]
     Indication: RHINITIS ALLERGIC
     Route: 045
  3. FLONASE [Concomitant]
     Indication: RHINITIS ALLERGIC
     Dosage: UNK, QD
     Route: 045

REACTIONS (2)
  - Eye pain [Recovered/Resolved]
  - Glaucoma [Recovered/Resolved]
